FAERS Safety Report 7273236-2 (Version None)
Quarter: 2011Q1

REPORT INFORMATION
  Report Type: 
  Country: None (occurrence: None)
  Receive Date: 20110203
  Receipt Date: 20110124
  Transmission Date: 20110831
  Serious: Yes (Hospitalization)
  Sender: FDA-Public Use
  Company Number: BG-ELI_LILLY_AND_COMPANY-BG201101007077

PATIENT
  Age: 30 Year
  Sex: Male

DRUGS (1)
  1. ZYPADHERA [Suspect]
     Indication: SCHIZOPHRENIA
     Dosage: 300 MG, EVERY 4 WEEKS
     Route: 030

REACTIONS (1)
  - INCORRECT ROUTE OF DRUG ADMINISTRATION [None]
